FAERS Safety Report 6904757-7 (Version None)
Quarter: 2010Q3

REPORT INFORMATION
  Report Type: 
  Country: None (occurrence: None)
  Receive Date: 20100804
  Receipt Date: 20100727
  Transmission Date: 20110219
  Serious: No
  Sender: FDA-Public Use
  Company Number: US-BIOGENIDEC-2010BI025549

PATIENT
  Sex: Female

DRUGS (3)
  1. AVONEX [Suspect]
     Indication: MULTIPLE SCLEROSIS
     Route: 030
     Dates: start: 20010101
  2. AVONEX [Suspect]
     Route: 030
  3. AVONEX [Suspect]
     Route: 030

REACTIONS (6)
  - DEPRESSION SUICIDAL [None]
  - IRRITABILITY [None]
  - MYALGIA [None]
  - PAIN [None]
  - SLEEP DISORDER [None]
  - VISUAL IMPAIRMENT [None]
